FAERS Safety Report 14528696 (Version 6)
Quarter: 2018Q4

REPORT INFORMATION
  Report Type: Report from Study
  Country: DE (occurrence: DE)
  Receive Date: 20180214
  Receipt Date: 20181001
  Transmission Date: 20190204
  Serious: Yes (Hospitalization)
  Sender: FDA-Public Use
  Company Number: DE-ROCHE-2067878

PATIENT
  Age: 38 Year
  Sex: Female
  Weight: 122 kg

DRUGS (26)
  1. FENISTIL (GERMANY) [Concomitant]
     Route: 042
     Dates: start: 20170510, end: 20170510
  2. PERFALGAN [Concomitant]
     Active Substance: ACETAMINOPHEN
     Route: 042
     Dates: start: 20170510, end: 20170510
  3. CLEXANE [Concomitant]
     Active Substance: ENOXAPARIN SODIUM
     Route: 048
     Dates: start: 20180801, end: 20180805
  4. MOXIFLOXACIN. [Concomitant]
     Active Substance: MOXIFLOXACIN
     Indication: RESPIRATORY TRACT INFECTION
     Route: 048
     Dates: start: 20180628, end: 20180704
  5. METHYLPREDNISOLONE. [Suspect]
     Active Substance: METHYLPREDNISOLONE
     Indication: PREMEDICATION
     Dosage: DATE OF MOST RECENT DOSE OF METHYLPREDNISOLONE PRIOR TO THIS EVENT ONSET: 25/OCT/2017?SUBSEQUENT DOS
     Route: 042
     Dates: start: 20170426
  6. FENISTIL (GERMANY) [Concomitant]
     Route: 042
     Dates: start: 20180912, end: 20180912
  7. PERFALGAN [Concomitant]
     Active Substance: ACETAMINOPHEN
     Route: 042
     Dates: start: 20170426, end: 20170426
  8. PERFALGAN [Concomitant]
     Active Substance: ACETAMINOPHEN
     Route: 042
     Dates: start: 20180912, end: 20180912
  9. NOVALGIN (METAMIZOLE SODIUM) [Concomitant]
     Active Substance: METAMIZOLE SODIUM
     Route: 048
     Dates: start: 2015
  10. FENISTIL (GERMANY) [Concomitant]
     Route: 042
     Dates: start: 20180327, end: 20180327
  11. CLEXANE [Concomitant]
     Active Substance: ENOXAPARIN SODIUM
     Indication: MULTIPLE SCLEROSIS RELAPSE
     Route: 058
     Dates: start: 20180509, end: 20180513
  12. CIPROFLOXACIN. [Concomitant]
     Active Substance: CIPROFLOXACIN
     Indication: URINARY TRACT INFECTION
     Route: 048
     Dates: start: 20180724, end: 20180728
  13. SEROQUEL [Concomitant]
     Active Substance: QUETIAPINE FUMARATE
     Route: 048
     Dates: start: 201704
  14. VENLAFAXIN [Concomitant]
     Active Substance: VENLAFAXINE HYDROCHLORIDE
     Route: 048
     Dates: start: 201704
  15. URBASON [Concomitant]
     Active Substance: METHYLPREDNISOLONE
     Indication: MULTIPLE SCLEROSIS RELAPSE
     Route: 042
     Dates: start: 20180509, end: 20180513
  16. MOXIFLOXACIN. [Concomitant]
     Active Substance: MOXIFLOXACIN
     Indication: NASOPHARYNGITIS
     Route: 048
     Dates: start: 20170829, end: 20170902
  17. OCRELIZUMAB. [Suspect]
     Active Substance: OCRELIZUMAB
     Indication: RELAPSING-REMITTING MULTIPLE SCLEROSIS
     Dosage: DATE OF MOST RECENT DOSE OF OCRELIZUMAB PRIOR TO THIS EVENT ONSET: 25/OCT/2017 AND NEXR DOSE ON 12/S
     Route: 042
     Dates: start: 20170426
  18. URBASON [Concomitant]
     Active Substance: METHYLPREDNISOLONE
     Route: 042
     Dates: start: 20180801, end: 20180805
  19. PANTOPRAZOL [Concomitant]
     Active Substance: PANTOPRAZOLE SODIUM
     Indication: MULTIPLE SCLEROSIS RELAPSE
     Route: 048
     Dates: start: 20180801, end: 20180805
  20. LORATADIN [Concomitant]
     Active Substance: LORATADINE
     Route: 048
     Dates: start: 201703
  21. FENISTIL (GERMANY) [Concomitant]
     Route: 042
     Dates: start: 20170426, end: 20170426
  22. PANTOZOL [Concomitant]
     Active Substance: PANTOPRAZOLE SODIUM
     Indication: MULTIPLE SCLEROSIS RELAPSE
     Route: 048
     Dates: start: 20180509, end: 20180513
  23. ATMADISC FORTE [Concomitant]
     Active Substance: FLUTICASONE FUROATE\SALMETEROL XINAFOATE
     Indication: UPPER RESPIRATORY TRACT INFECTION
     Dosage: 25UG/ 250UG
     Route: 048
     Dates: start: 20170920
  24. FENISTIL (GERMANY) [Concomitant]
     Route: 042
     Dates: start: 20171025, end: 20171025
  25. PERFALGAN [Concomitant]
     Active Substance: ACETAMINOPHEN
     Route: 042
     Dates: start: 20171025, end: 20171025
  26. PERFALGAN [Concomitant]
     Active Substance: ACETAMINOPHEN
     Route: 042
     Dates: start: 20180327, end: 20180327

REACTIONS (1)
  - Benign neoplasm of thymus [Recovered/Resolved]

NARRATIVE: CASE EVENT DATE: 20171108
